FAERS Safety Report 18447943 (Version 3)
Quarter: 2020Q4

REPORT INFORMATION
  Report Type: Other
  Country: RS (occurrence: RS)
  Receive Date: 20201101
  Receipt Date: 20201202
  Transmission Date: 20210114
  Serious: Yes (Other)
  Sender: FDA-Public Use
  Company Number: RS-ROCHE-2702848

PATIENT
  Age: 59 Year
  Sex: Female

DRUGS (3)
  1. DEXASON [Concomitant]
     Active Substance: DEXAMETHASONE
     Dosage: D1
  2. GAZYVA [Suspect]
     Active Substance: OBINUTUZUMAB
     Indication: NON-HODGKIN^S LYMPHOMA
     Dosage: APPLICATION DIVIDED IN TWO DAYS, FIRST DAY 100 AND THE SECOND 900
     Route: 042
     Dates: start: 20200726
  3. SYNOPEN [Concomitant]
     Active Substance: CHLOROPYRAMINE HYDROCHLORIDE
     Dosage: D1

REACTIONS (7)
  - Infusion related reaction [Unknown]
  - Bronchospasm [Recovered/Resolved]
  - Chronic obstructive pulmonary disease [Unknown]
  - Dyspnoea [Recovered/Resolved]
  - Neutropenia [Recovered/Resolved]
  - Intentional product misuse [Unknown]
  - Off label use [Unknown]

NARRATIVE: CASE EVENT DATE: 20200726
